FAERS Safety Report 11983480 (Version 2)
Quarter: 2016Q1

REPORT INFORMATION
  Report Type: Spontaneous
  Country: GR (occurrence: GR)
  Receive Date: 20160201
  Receipt Date: 20160302
  Transmission Date: 20160526
  Serious: Yes (Hospitalization)
  Sender: FDA-Public Use
  Company Number: GR-ELI_LILLY_AND_COMPANY-GR201601007848

PATIENT
  Sex: Female

DRUGS (8)
  1. LIPOSOMAL DOXORUBICIN HCL [Concomitant]
     Active Substance: DOXORUBICIN HYDROCHLORIDE
  2. VITAMIN D [Concomitant]
     Active Substance: CHOLECALCIFEROL
  3. TRAMAL [Suspect]
     Active Substance: TRAMADOL
     Indication: PAIN
     Dosage: 3 DF, UNKNOWN
     Route: 065
     Dates: start: 201512
  4. LYRICA [Suspect]
     Active Substance: PREGABALIN
     Indication: PAIN
     Dosage: 2 DF, BID
     Dates: start: 201511
  5. NEURONTIN [Suspect]
     Active Substance: GABAPENTIN
     Indication: PAIN
     Dosage: 400 MG, QD
     Route: 048
     Dates: start: 20151230, end: 20151231
  6. NEURONTIN [Suspect]
     Active Substance: GABAPENTIN
     Dosage: 400 MG, BID
     Route: 065
     Dates: start: 20151231, end: 201601
  7. CYMBALTA [Suspect]
     Active Substance: DULOXETINE HYDROCHLORIDE
     Indication: PAIN
     Dosage: UNK UNK, UNKNOWN
     Route: 048
     Dates: start: 201511
  8. C VITAMIN [Concomitant]

REACTIONS (7)
  - Papule [Recovering/Resolving]
  - Neuralgia [Unknown]
  - Drug ineffective [Unknown]
  - Ecchymosis [Recovering/Resolving]
  - Platelet count decreased [Recovering/Resolving]
  - Petechiae [Recovering/Resolving]
  - Oedema [Recovering/Resolving]

NARRATIVE: CASE EVENT DATE: 20151231
